FAERS Safety Report 8906975 (Version 2)
Quarter: 2016Q1

REPORT INFORMATION
  Report Type: Spontaneous
  Country: US (occurrence: US)
  Receive Date: 20121114
  Receipt Date: 20160107
  Transmission Date: 20160526
  Serious: Yes (Hospitalization, Other)
  Sender: FDA-Public Use
  Company Number: US-GLAXOSMITHKLINE-A0960461A

PATIENT
  Age: 44 Year
  Sex: Female
  Weight: 59.93 kg

DRUGS (15)
  1. CELEXA [Concomitant]
     Active Substance: CITALOPRAM HYDROBROMIDE
  2. VASCULERA [Concomitant]
     Dosage: UNK
  3. PREDNISONE. [Concomitant]
     Active Substance: PREDNISONE
  4. IMURAN [Concomitant]
     Active Substance: AZATHIOPRINE
  5. MOBIC [Concomitant]
     Active Substance: MELOXICAM
     Dosage: UNK
     Route: 065
  6. ASPIRIN. [Concomitant]
     Active Substance: ASPIRIN
  7. RANITIDINE [Concomitant]
     Active Substance: RANITIDINE\RANITIDINE HYDROCHLORIDE
     Dosage: UNK
  8. SOLU-MEDROL [Concomitant]
     Active Substance: METHYLPREDNISOLONE SODIUM SUCCINATE
  9. ARAVA [Concomitant]
     Active Substance: LEFLUNOMIDE
  10. FOLIC ACID. [Concomitant]
     Active Substance: FOLIC ACID
  11. CALCIUM [Concomitant]
     Active Substance: CALCIUM
     Dosage: UNK
  12. LIMBREL [Concomitant]
     Active Substance: FLAVOCOXID
  13. SPIRIVA [Concomitant]
     Active Substance: TIOTROPIUM BROMIDE MONOHYDRATE
     Dosage: UNK
  14. BENLYSTA [Suspect]
     Active Substance: BELIMUMAB
     Indication: SYSTEMIC LUPUS ERYTHEMATOSUS
     Dosage: UNK, UNK
     Route: 042
     Dates: start: 201106
  15. IMURAN [Concomitant]
     Active Substance: AZATHIOPRINE

REACTIONS (33)
  - Pulmonary hypertension [Unknown]
  - Throat tightness [Unknown]
  - Tachypnoea [Unknown]
  - Drug ineffective [Unknown]
  - Mitral valve incompetence [Unknown]
  - Systemic lupus erythematosus [Unknown]
  - Diastolic dysfunction [Unknown]
  - Pain in extremity [Unknown]
  - Muscular weakness [Not Recovered/Not Resolved]
  - Hypotension [Recovered/Resolved]
  - Diarrhoea [Recovered/Resolved]
  - Hyperhidrosis [Unknown]
  - Headache [Unknown]
  - Infusion site pain [Unknown]
  - Myalgia [Unknown]
  - Dizziness [Unknown]
  - Dyspnoea exertional [Unknown]
  - Muscle tightness [Unknown]
  - Left ventricular failure [Unknown]
  - Electrocardiogram T wave amplitude decreased [Unknown]
  - Dyspnoea [Not Recovered/Not Resolved]
  - Constipation [Unknown]
  - Cough [Unknown]
  - Chest pain [Unknown]
  - Pain [Unknown]
  - Blood pressure increased [Unknown]
  - Tricuspid valve incompetence [Unknown]
  - Chills [Recovered/Resolved]
  - Chest discomfort [Unknown]
  - Nausea [Unknown]
  - Insomnia [Recovered/Resolved]
  - Costochondritis [Not Recovered/Not Resolved]
  - Heart rate decreased [Unknown]

NARRATIVE: CASE EVENT DATE: 20110712
